FAERS Safety Report 9369533 (Version 1)
Quarter: 2013Q2

REPORT INFORMATION
  Report Type: Spontaneous
  Country: US (occurrence: US)
  Receive Date: 20130626
  Receipt Date: 20130626
  Transmission Date: 20140414
  Serious: No
  Sender: FDA-Public Use
  Company Number: US-BAYER-2013-059396

PATIENT
  Sex: 0

DRUGS (2)
  1. AVELOX [Suspect]
     Indication: DYSPNOEA
  2. AVELOX [Suspect]
     Indication: LUNG DISORDER

REACTIONS (1)
  - Adverse drug reaction [None]
